FAERS Safety Report 16379039 (Version 1)
Quarter: 2019Q2

REPORT INFORMATION
  Report Type: Spontaneous
  Country: US (occurrence: US)
  Receive Date: 20190531
  Receipt Date: 20190531
  Transmission Date: 20190711
  Serious: No
  Sender: FDA-Public Use
  Company Number: US-GLAXOSMITHKLINE-US2019096955

PATIENT
  Age: 64 Year
  Sex: Female

DRUGS (4)
  1. FLONASE [Suspect]
     Active Substance: FLUTICASONE PROPIONATE
     Indication: DYSPNOEA
  2. FLONASE [Suspect]
     Active Substance: FLUTICASONE PROPIONATE
     Indication: DEAFNESS
     Dosage: I BEEN USING IT ONCE A DAY TWICE IN EACH NOSTRIL
     Route: 045
  3. FLONASE [Suspect]
     Active Substance: FLUTICASONE PROPIONATE
     Indication: DEAFNESS
     Dosage: UNK
  4. FLONASE [Suspect]
     Active Substance: FLUTICASONE PROPIONATE
     Indication: DYSPNOEA
     Dosage: I BEEN USING IT ONCE A DAY TWICE IN EACH NOSTRIL

REACTIONS (2)
  - Product use in unapproved indication [Unknown]
  - Facial pain [Unknown]

NARRATIVE: CASE EVENT DATE: 20190518
